FAERS Safety Report 8222973-1 (Version None)
Quarter: 2012Q1

REPORT INFORMATION
  Report Type: 
  Country: None (occurrence: None)
  Receive Date: 20120320
  Receipt Date: 20120316
  Transmission Date: 20120608
  Serious: Yes (Other)
  Sender: FDA-Public Use
  Company Number: GB-MERCK-1203GBR00059

PATIENT
  Age: 55 Year
  Sex: Female

DRUGS (6)
  1. METFORMIN [Concomitant]
     Route: 048
  2. JANUVIA [Suspect]
     Indication: DIABETES MELLITUS
     Route: 048
     Dates: start: 20120221, end: 20120224
  3. OMEPRAZOLE [Concomitant]
     Route: 048
  4. BECLOMETHASONE DIPROPIONATE [Concomitant]
     Route: 065
  5. GLIMEPIRIDE [Concomitant]
     Route: 048
  6. ALBUTEROL [Concomitant]
     Route: 055

REACTIONS (4)
  - GASTROOESOPHAGEAL REFLUX DISEASE [None]
  - ABDOMINAL PAIN [None]
  - ARTHRALGIA [None]
  - ABDOMINAL DISCOMFORT [None]
